FAERS Safety Report 25513679 (Version 1)
Quarter: 2025Q3

REPORT INFORMATION
  Report Type: Spontaneous
  Country: US (occurrence: US)
  Receive Date: 20250703
  Receipt Date: 20250703
  Transmission Date: 20251021
  Serious: No
  Sender: RADIUS PHARM
  Company Number: US-RADIUS HEALTH INC.-2024US009134

PATIENT
  Sex: Female

DRUGS (1)
  1. TYMLOS [Suspect]
     Active Substance: ABALOPARATIDE
     Indication: Osteoporotic fracture
     Route: 058

REACTIONS (10)
  - Pain [Unknown]
  - Muscular weakness [Unknown]
  - Therapy interrupted [Unknown]
  - Pain in jaw [Recovered/Resolved]
  - Bone pain [Unknown]
  - Toothache [Recovered/Resolved]
  - Eye pain [Recovered/Resolved]
  - Ear pain [Recovered/Resolved]
  - Headache [Recovered/Resolved]
  - Product dose omission issue [Unknown]
